FAERS Safety Report 7480055-0 (Version None)
Quarter: 2011Q2

REPORT INFORMATION
  Report Type: 
  Country: None (occurrence: None)
  Receive Date: 20110516
  Receipt Date: 20110505
  Transmission Date: 20111010
  Serious: No
  Sender: FDA-Public Use
  Company Number: US-BIOGENIDEC-2011BI007153

PATIENT
  Sex: Female

DRUGS (1)
  1. TYSABRI [Suspect]
     Indication: MULTIPLE SCLEROSIS
     Route: 042
     Dates: start: 20070110

REACTIONS (12)
  - FALL [None]
  - FATIGUE [None]
  - DEPRESSION [None]
  - DYSPEPSIA [None]
  - INSOMNIA [None]
  - SUBCUTANEOUS NODULE [None]
  - HAND FRACTURE [None]
  - PAIN [None]
  - MUSCULOSKELETAL DISORDER [None]
  - MULTIPLE SCLEROSIS RELAPSE [None]
  - GAIT DISTURBANCE [None]
  - DISTURBANCE IN ATTENTION [None]
